FAERS Safety Report 20976743 (Version 1)
Quarter: 2022Q2

REPORT INFORMATION
  Report Type: Spontaneous
  Country: US (occurrence: US)
  Receive Date: 20220617
  Receipt Date: 20220617
  Transmission Date: 20220721
  Serious: Yes (Other)
  Sender: FDA-Public Use
  Company Number: US-REDHILL BIOPHARMA-2022RDH00109

PATIENT

DRUGS (1)
  1. TALICIA [Suspect]
     Active Substance: AMOXICILLIN\OMEPRAZOLE MAGNESIUM\RIFABUTIN
     Indication: Helicobacter infection
     Dosage: UNK ^PRESUMED AS DIRECTED^
     Route: 048

REACTIONS (2)
  - Renal tubular necrosis [Unknown]
  - Renal failure [Unknown]
